FAERS Safety Report 18651394 (Version 1)
Quarter: 2020Q4

REPORT INFORMATION
  Report Type: Spontaneous
  Country: RU (occurrence: RU)
  Receive Date: 20201223
  Receipt Date: 20201223
  Transmission Date: 20210114
  Serious: Yes (Other)
  Sender: FDA-Public Use
  Company Number: RU-BRISTOL-MYERS SQUIBB COMPANY-BMS-2020-011462

PATIENT
  Age: 29 Year
  Sex: Female

DRUGS (4)
  1. NIVOLUMAB [Suspect]
     Active Substance: NIVOLUMAB
     Indication: HODGKIN^S DISEASE
     Dosage: UNK
     Route: 042
     Dates: start: 20180709, end: 20181221
  2. BRENTUXIMAB [Suspect]
     Active Substance: BRENTUXIMAB VEDOTIN
     Indication: HODGKIN^S DISEASE
     Dosage: UNK
     Route: 065
     Dates: start: 20171124, end: 20180123
  3. BRENTUXIMAB [Suspect]
     Active Substance: BRENTUXIMAB VEDOTIN
     Dosage: UNK
     Route: 065
     Dates: start: 20180709, end: 20181221
  4. NIVOLUMAB [Suspect]
     Active Substance: NIVOLUMAB
     Dosage: 180 MILLIGRAM, Q2WK
     Route: 042
     Dates: start: 20190125, end: 201906

REACTIONS (3)
  - Normal newborn [Unknown]
  - Maternal exposure before pregnancy [Recovered/Resolved]
  - Umbilical cord abnormality [Unknown]

NARRATIVE: CASE EVENT DATE: 20200620
